FAERS Safety Report 7895123-9 (Version None)
Quarter: 2011Q4

REPORT INFORMATION
  Report Type: 
  Country: None (occurrence: None)
  Receive Date: 20111106
  Receipt Date: 20110823
  Transmission Date: 20120403
  Serious: No
  Sender: FDA-Public Use
  Company Number: US-AMGEN-USASP2011042932

PATIENT
  Age: 86 Year
  Sex: Female

DRUGS (1)
  1. ENBREL [Suspect]
     Indication: RHEUMATOID ARTHRITIS
     Dates: start: 20080101

REACTIONS (6)
  - SCAB [None]
  - RHEUMATOID ARTHRITIS [None]
  - ERYTHEMA [None]
  - RHINITIS [None]
  - RHINORRHOEA [None]
  - FOOT DEFORMITY [None]
